FAERS Safety Report 19259339 (Version 1)
Quarter: 2021Q2

REPORT INFORMATION
  Report Type: Spontaneous
  Country: NZ (occurrence: NZ)
  Receive Date: 20210514
  Receipt Date: 20210514
  Transmission Date: 20210717
  Serious: Yes (Other)
  Sender: FDA-Public Use
  Company Number: NZ-PFIZER INC-2021295220

PATIENT
  Age: 58 Year
  Sex: Male

DRUGS (1)
  1. PREGABALIN. [Suspect]
     Active Substance: PREGABALIN
     Dosage: 150 MG, DAILY
     Route: 048

REACTIONS (2)
  - Withdrawal syndrome [Recovered/Resolved]
  - Dermatitis bullous [Unknown]

NARRATIVE: CASE EVENT DATE: 2011
